FAERS Safety Report 26203591 (Version 1)
Quarter: 2025Q4

REPORT INFORMATION
  Report Type: Report from Study
  Country: CA (occurrence: CA)
  Receive Date: 20251226
  Receipt Date: 20251226
  Transmission Date: 20260118
  Serious: Yes (Other)
  Sender: BIOCON
  Company Number: CA-MYLANLABS-2022M1080412

PATIENT

DRUGS (5)
  1. HULIO [Suspect]
     Active Substance: ADALIMUMAB-FKJP
     Indication: Rheumatoid arthritis
     Dosage: 40 MILLIGRAM, QW
     Route: 058
     Dates: start: 202107
  2. HULIO [Suspect]
     Active Substance: ADALIMUMAB-FKJP
     Dosage: 40 MILLIGRAM, QW (AS PER PM)
     Route: 058
     Dates: start: 20210707
  3. HULIO [Suspect]
     Active Substance: ADALIMUMAB-FKJP
  4. HULIO [Suspect]
     Active Substance: ADALIMUMAB-FKJP
  5. HULIO [Suspect]
     Active Substance: ADALIMUMAB-FKJP

REACTIONS (7)
  - Blindness [Unknown]
  - Surgery [Unknown]
  - Mobility decreased [Unknown]
  - Visual impairment [Unknown]
  - Treatment delayed [Unknown]
  - Herpes zoster [Unknown]
  - Off label use [Unknown]

NARRATIVE: CASE EVENT DATE: 20210701
